FAERS Safety Report 14073895 (Version 1)
Quarter: 2017Q4

REPORT INFORMATION
  Report Type: Spontaneous
  Country: US (occurrence: US)
  Receive Date: 20171010
  Receipt Date: 20171010
  Transmission Date: 20180321
  Serious: No
  Sender: FDA-Public Use
  Company Number: US-JNJFOC-20170914338

PATIENT
  Age: 88 Year
  Sex: Female
  Weight: 56.7 kg

DRUGS (2)
  1. TYLENOL EXTRA STRENGTH [Suspect]
     Active Substance: ACETAMINOPHEN
     Indication: PAIN
     Dosage: 2 TABLETS TWICE WITHIN A HALF HOUR OF EACH OTHER
     Route: 048
     Dates: start: 20170913, end: 201709
  2. TYLENOL EXTRA STRENGTH [Suspect]
     Active Substance: ACETAMINOPHEN
     Indication: ACCIDENTAL EXPOSURE TO PRODUCT
     Dosage: 2 TABLETS TWICE WITHIN A HALF HOUR OF EACH OTHER
     Route: 048
     Dates: start: 20170913, end: 201709

REACTIONS (1)
  - Extra dose administered [Unknown]
